FAERS Safety Report 7627761-2 (Version None)
Quarter: 2011Q3

REPORT INFORMATION
  Report Type: 
  Country: None (occurrence: None)
  Receive Date: 20110721
  Receipt Date: 20110711
  Transmission Date: 20111222
  Serious: No
  Sender: FDA-Public Use
  Company Number: US-B.I. PHARMACEUTICALS,INC./RIDGEFIELD-2011-BP-13431BP

PATIENT
  Age: 72 Year
  Sex: Female

DRUGS (3)
  1. DIGOXIN [Concomitant]
  2. PRADAXA [Suspect]
     Dosage: 300 MG
  3. ATENOLOL [Concomitant]

REACTIONS (1)
  - WEIGHT DECREASED [None]
